FAERS Safety Report 8850790 (Version 2)
Quarter: 2014Q3

REPORT INFORMATION
  Report Type: Spontaneous
  Country: US (occurrence: US)
  Receive Date: 20121019
  Receipt Date: 20140924
  Transmission Date: 20150326
  Serious: Yes (Other)
  Sender: FDA-Public Use
  Company Number: US-RANBAXY-2012US-61149

PATIENT
  Age: 18 Year
  Sex: Male

DRUGS (1)
  1. MORPHINE [Suspect]
     Active Substance: MORPHINE
     Indication: PRODUCT USED FOR UNKNOWN INDICATION
     Dosage: UNK
     Route: 045

REACTIONS (9)
  - Hypotension [Recovered/Resolved]
  - Drug abuse [Unknown]
  - Deafness [Recovered/Resolved]
  - Transaminases increased [Recovered/Resolved]
  - Mental status changes [Recovered/Resolved]
  - Troponin increased [Recovered/Resolved]
  - Tachycardia [Recovered/Resolved]
  - Renal impairment [Recovered/Resolved]
  - Wrong technique in drug usage process [Unknown]
